FAERS Safety Report 18632842 (Version 1)
Quarter: 2020Q4

REPORT INFORMATION
  Report Type: Spontaneous
  Country: US (occurrence: US)
  Receive Date: 20201218
  Receipt Date: 20201218
  Transmission Date: 20210114
  Serious: No
  Sender: FDA-Public Use
  Company Number: US-009507513-2011USA012892

PATIENT
  Age: 65 Year
  Sex: Female

DRUGS (5)
  1. NEXIUM [Concomitant]
     Active Substance: ESOMEPRAZOLE MAGNESIUM
  2. LORAZEPAM. [Concomitant]
     Active Substance: LORAZEPAM
  3. ANASTROZOLE. [Concomitant]
     Active Substance: ANASTROZOLE
  4. TRAZODONE HYDROCHLORIDE. [Concomitant]
     Active Substance: TRAZODONE HYDROCHLORIDE
  5. BELSOMRA [Suspect]
     Active Substance: SUVOREXANT
     Indication: INSOMNIA
     Dosage: 10MG/ONE TABLET BEFORE BED
     Route: 048
     Dates: start: 20201110, end: 20201118

REACTIONS (4)
  - Drug ineffective [Unknown]
  - Muscular weakness [Unknown]
  - Sinus disorder [Unknown]
  - Myalgia [Unknown]

NARRATIVE: CASE EVENT DATE: 20201110
